FAERS Safety Report 24914142 (Version 1)
Quarter: 2025Q1

REPORT INFORMATION
  Report Type: Spontaneous
  Country: US (occurrence: US)
  Receive Date: 20250202
  Receipt Date: 20250202
  Transmission Date: 20250409
  Serious: Yes (Death, Hospitalization, Other)
  Sender: JOHNSON AND JOHNSON
  Company Number: US-JNJFOC-20240846339

PATIENT

DRUGS (2)
  1. CARVYKTI [Suspect]
     Active Substance: CILTACABTAGENE AUTOLEUCEL
     Indication: Plasma cell myeloma
     Route: 065
  2. IDECABTAGENE VICLEUCEL [Suspect]
     Active Substance: IDECABTAGENE VICLEUCEL
     Indication: Plasma cell myeloma
     Route: 065

REACTIONS (12)
  - Sepsis [Fatal]
  - Cytokine release syndrome [Unknown]
  - Immune effector cell-associated neurotoxicity syndrome [Unknown]
  - Clostridium difficile infection [Recovered/Resolved]
  - Cytomegalovirus viraemia [Recovered/Resolved]
  - Human herpesvirus 6 viraemia [Recovered/Resolved]
  - Neutropenia [Unknown]
  - Thrombocytopenia [Unknown]
  - Bacterial infection [Recovered/Resolved]
  - Adenovirus infection [Recovered/Resolved]
  - Norovirus infection [Recovered/Resolved]
  - Anaemia [Unknown]
